FAERS Safety Report 10706579 (Version 2)
Quarter: 2016Q1

REPORT INFORMATION
  Report Type: Spontaneous
  Country: DK (occurrence: DK)
  Receive Date: 20150113
  Receipt Date: 20160203
  Transmission Date: 20160525
  Serious: Yes (Hospitalization)
  Sender: FDA-Public Use
  Company Number: DK-EISAI MEDICAL RESEARCH-EC-2015-002992

PATIENT
  Age: 85 Year
  Sex: Male

DRUGS (7)
  1. ARICEPT [Suspect]
     Active Substance: DONEPEZIL HYDROCHLORIDE
     Indication: DEMENTIA
     Dosage: UNKNOWN
     Route: 048
     Dates: start: 201409, end: 201409
  2. OXAZEPAM. [Concomitant]
     Active Substance: OXAZEPAM
     Indication: SEDATION
     Route: 065
     Dates: start: 201412
  3. CENTYL [Concomitant]
     Active Substance: BENDROFLUMETHIAZIDE
     Dosage: UNKNOWN
     Route: 065
     Dates: start: 2012, end: 2014
  4. MIRTAZAPIN [Concomitant]
     Active Substance: MIRTAZAPINE
     Dosage: UNKNOWN
     Route: 065
  5. PINEX [Concomitant]
     Active Substance: ACETAMINOPHEN
     Dosage: UNKNOWN
     Route: 065
     Dates: start: 2012
  6. AVODART [Concomitant]
     Active Substance: DUTASTERIDE
     Dosage: UNKNOWN
     Route: 065
     Dates: start: 2012, end: 2014
  7. HYDROCHLORTHIAZID [Concomitant]
     Active Substance: HYDROCHLOROTHIAZIDE
     Indication: DIURETIC THERAPY
     Dosage: UNKNOWN
     Route: 065
     Dates: end: 2015

REACTIONS (6)
  - Insomnia [Unknown]
  - Drug reaction with eosinophilia and systemic symptoms [Recovering/Resolving]
  - Cognitive disorder [Unknown]
  - Pruritus [Unknown]
  - Oedema [Unknown]
  - Rash [Unknown]

NARRATIVE: CASE EVENT DATE: 201409
